FAERS Safety Report 23301187 (Version 2)
Quarter: 2023Q4

REPORT INFORMATION
  Report Type: Spontaneous
  Country: JP (occurrence: JP)
  Receive Date: 20231215
  Receipt Date: 20231222
  Transmission Date: 20240109
  Serious: No
  Sender: FDA-Public Use
  Company Number: JP-MYLANLABS-2023M1119063

PATIENT
  Age: 6 Year

DRUGS (1)
  1. EPIPEN [Suspect]
     Active Substance: EPINEPHRINE
     Indication: Food allergy
     Dosage: UNK MILLILITER
     Route: 061

REACTIONS (3)
  - Accidental exposure to product by child [Unknown]
  - Product quality issue [Unknown]
  - Injection site haemorrhage [Recovering/Resolving]
